FAERS Safety Report 9921949 (Version 2)
Quarter: 2014Q1

REPORT INFORMATION
  Report Type: Spontaneous
  Country: US (occurrence: US)
  Receive Date: 20140225
  Receipt Date: 20140225
  Transmission Date: 20141002
  Serious: Yes (Other)
  Sender: FDA-Public Use
  Company Number: US-AMGEN-USASP2013078649

PATIENT
  Age: 74 Year
  Sex: Female

DRUGS (3)
  1. PROLIA [Suspect]
     Indication: OSTEOPOROSIS POSTMENOPAUSAL
     Dosage: UNK
     Route: 065
     Dates: start: 20130924
  2. NEUPOGEN [Suspect]
     Indication: LYMPHOMA
     Route: 065
  3. CITRACAL + D                       /01438101/ [Concomitant]

REACTIONS (5)
  - Cognitive disorder [Unknown]
  - Immunodeficiency [Not Recovered/Not Resolved]
  - Hiccups [Not Recovered/Not Resolved]
  - Chest discomfort [Not Recovered/Not Resolved]
  - Chest pain [Unknown]
